FAERS Safety Report 12131590 (Version 1)
Quarter: 2016Q1

REPORT INFORMATION
  Report Type: Spontaneous
  Country: US (occurrence: None)
  Receive Date: 20160229
  Receipt Date: 20160229
  Transmission Date: 20160526
  Serious: No
  Sender: FDA-Public Use
  Company Number: None

PATIENT
  Age: 59 Year
  Sex: Female
  Weight: 97.52 kg

DRUGS (42)
  1. MULTIVITAMIN [Concomitant]
     Active Substance: VITAMINS
  2. VITAMIN B-1 [Concomitant]
     Active Substance: THIAMINE
  3. VITAMIN B3 [Concomitant]
     Active Substance: NIACIN
  4. LEVOTHYROXIN [Concomitant]
     Active Substance: LEVOTHYROXINE
  5. IRON [Concomitant]
     Active Substance: IRON
  6. IODINE [Concomitant]
     Active Substance: IODINE
  7. COPPER [Concomitant]
     Active Substance: COPPER
  8. CHROMIUM [Concomitant]
     Active Substance: CHROMIC CHLORIDE\CHROMIUM
  9. MOLYBDENUM [Concomitant]
     Active Substance: MOLYBDENUM
  10. AZELASTINE HYDROCHLORIDE. [Concomitant]
     Active Substance: AZELASTINE HYDROCHLORIDE
  11. VITAMIN E [Concomitant]
     Active Substance: .ALPHA.-TOCOPHEROL
  12. VITAMIN B-5 [Concomitant]
  13. SIMVASTATIN. [Concomitant]
     Active Substance: SIMVASTATIN
  14. FOLIC ACID. [Concomitant]
     Active Substance: FOLIC ACID
  15. CALCIUM [Concomitant]
     Active Substance: CALCIUM
  16. CYMBALTA [Suspect]
     Active Substance: DULOXETINE HYDROCHLORIDE
     Indication: DEPRESSION
     Dosage: 1PILL ONCE DAILY TAKEN BY MOUTH
     Route: 048
     Dates: start: 20151016, end: 20151102
  17. TEMAZEPAM. [Concomitant]
     Active Substance: TEMAZEPAM
  18. VITAMIN C [Concomitant]
     Active Substance: ASCORBIC ACID
  19. VITAMIN D2 [Concomitant]
     Active Substance: ERGOCALCIFEROL
  20. BORON [Concomitant]
     Active Substance: BORON
  21. CYMBALTA [Suspect]
     Active Substance: DULOXETINE HYDROCHLORIDE
     Indication: MAJOR DEPRESSION
     Dosage: 1 PILL ONCE DAILY TAKEN BY MOUTH
     Route: 048
     Dates: start: 20151207, end: 20160226
  22. METFORMIN [Concomitant]
     Active Substance: METFORMIN HYDROCHLORIDE
  23. BIOTIN [Concomitant]
     Active Substance: BIOTIN
  24. ZINC [Concomitant]
     Active Substance: ZINC\ZINC CHLORIDE
  25. LUTEIN [Concomitant]
     Active Substance: LUTEIN
  26. LISINOPRIL. [Concomitant]
     Active Substance: LISINOPRIL
  27. AMLODIPINE [Concomitant]
     Active Substance: AMLODIPINE BESYLATE
  28. FLUTICASONE PROPIONATE. [Concomitant]
     Active Substance: FLUTICASONE PROPIONATE
  29. DULOXETINE. [Concomitant]
     Active Substance: DULOXETINE
  30. VITAMIN B-6 [Concomitant]
     Active Substance: PYRIDOXINE
  31. VITAMIN B12 [Concomitant]
     Active Substance: CYANOCOBALAMIN
  32. MAGNESIUM [Concomitant]
     Active Substance: MAGNESIUM
  33. INOSITOL [Concomitant]
     Active Substance: INOSITOL
  34. TOPIRAMATE. [Concomitant]
     Active Substance: TOPIRAMATE
  35. NASAL SPRAY [Concomitant]
     Active Substance: UNSPECIFIED INGREDIENT
  36. MINERAL SUPPLEMENT [Concomitant]
  37. VITAMIN A [Concomitant]
     Active Substance: VITAMIN A
  38. VITAMIN B [Concomitant]
     Active Substance: VITAMIN B
  39. VITAMIN B2 [Concomitant]
     Active Substance: RIBOFLAVIN
  40. SELENIUM [Concomitant]
     Active Substance: SELENIUM
  41. MANGANESE [Concomitant]
     Active Substance: MANGANESE\MANGANESE CHLORIDE
  42. CHOLINE [Concomitant]
     Active Substance: CHOLINE

REACTIONS (15)
  - Crying [None]
  - Dry mouth [None]
  - Hyperhidrosis [None]
  - Irritability [None]
  - Seasonal allergy [None]
  - Anxiety [None]
  - Hostility [None]
  - Depressed mood [None]
  - Rhinorrhoea [None]
  - Dysgeusia [None]
  - Headache [None]
  - Drug ineffective [None]
  - Apathy [None]
  - Malaise [None]
  - Anger [None]

NARRATIVE: CASE EVENT DATE: 20160226
